FAERS Safety Report 6864546-9 (Version None)
Quarter: 2010Q3

REPORT INFORMATION
  Report Type: 
  Country: None (occurrence: None)
  Receive Date: 20100721
  Receipt Date: 20080328
  Transmission Date: 20110219
  Serious: No
  Sender: FDA-Public Use
  Company Number: US-PFIZER INC-2008028744

PATIENT
  Sex: Female
  Weight: 71.7 kg

DRUGS (2)
  1. CHANTIX [Suspect]
     Indication: SMOKING CESSATION THERAPY
     Route: 048
     Dates: start: 20080201, end: 20080201
  2. ANTIHYPERTENSIVES [Concomitant]

REACTIONS (6)
  - CRYING [None]
  - FEELING ABNORMAL [None]
  - FLASHBACK [None]
  - IRRITABILITY [None]
  - PANIC ATTACK [None]
  - TREMOR [None]
